FAERS Safety Report 4713057-5 (Version None)
Quarter: 2005Q3

REPORT INFORMATION
  Report Type: 
  Country: None (occurrence: None)
  Receive Date: 20050711
  Receipt Date: 20050616
  Transmission Date: 20060218
  Serious: Yes (Death)
  Sender: FDA-Public Use
  Company Number: 11641

PATIENT
  Age: 75 Year
  Sex: Female

DRUGS (2)
  1. AMIODARONE [Suspect]
     Indication: SUPRAVENTRICULAR TACHYCARDIA
     Dosage: 300 MG ONCE
     Route: 042
     Dates: start: 20001227, end: 20001201
  2. INSULIN [Concomitant]

REACTIONS (8)
  - ASCITES [None]
  - CHOLESTASIS [None]
  - HEPATIC ENCEPHALOPATHY [None]
  - HEPATIC FAILURE [None]
  - HEPATITIS ACUTE [None]
  - HYPOALBUMINAEMIA [None]
  - PROTHROMBIN TIME PROLONGED [None]
  - SPLENOMEGALY [None]
